FAERS Safety Report 18856209 (Version 1)
Quarter: 2021Q1

REPORT INFORMATION
  Report Type: Spontaneous
  Country: KR (occurrence: KR)
  Receive Date: 20210206
  Receipt Date: 20210206
  Transmission Date: 20210420
  Serious: Yes (Other)
  Sender: FDA-Public Use
  Company Number: KR-ARBOR PHARMACEUTICALS, LLC-KR-2021ARB000146

PATIENT
  Age: 60 Year
  Sex: Male

DRUGS (1)
  1. EDARBI [Suspect]
     Active Substance: AZILSARTAN KAMEDOXOMIL
     Indication: PRODUCT USED FOR UNKNOWN INDICATION
     Dosage: 40 MG, UNK
     Route: 048

REACTIONS (2)
  - Hypotension [Unknown]
  - Headache [Unknown]
